FAERS Safety Report 10378283 (Version 3)
Quarter: 2014Q3

REPORT INFORMATION
  Report Type: Spontaneous
  Country: US (occurrence: US)
  Receive Date: 20140812
  Receipt Date: 20140827
  Transmission Date: 20150326
  Serious: Yes (Hospitalization, Other)
  Sender: FDA-Public Use
  Company Number: US-PFIZER INC-2014221740

PATIENT
  Age: 64 Year
  Sex: Male

DRUGS (4)
  1. SUTENT [Suspect]
     Active Substance: SUNITINIB MALATE
     Dosage: 50 MG, CYCLIC (DAILY-4 WEEKS ON, 2 WEEKS OFF)
     Route: 048
     Dates: start: 20130125, end: 20140207
  2. PANTOPRAZOLE SODIUM [Concomitant]
     Active Substance: PANTOPRAZOLE SODIUM
     Dosage: UNK
  3. CALCITROL [Concomitant]
     Active Substance: CALCITRIOL
     Dosage: UNK
  4. SUTENT [Suspect]
     Active Substance: SUNITINIB MALATE
     Indication: RENAL CELL CARCINOMA
     Dosage: 50 MG, CYCLIC
     Dates: start: 201208

REACTIONS (39)
  - Anaemia [Unknown]
  - Gastrooesophageal reflux disease [Unknown]
  - Asthenia [Unknown]
  - Diastolic dysfunction [Unknown]
  - Renal cell carcinoma [Unknown]
  - Nasopharyngitis [Unknown]
  - Benign prostatic hyperplasia [Unknown]
  - Blood thyroid stimulating hormone increased [Unknown]
  - Weight decreased [Unknown]
  - Dizziness [Unknown]
  - Mitral valve incompetence [Unknown]
  - Rash [Unknown]
  - Eyelid rash [Unknown]
  - Herpes zoster [Unknown]
  - Claustrophobia [Unknown]
  - Gynaecomastia [Unknown]
  - Neutrophil count decreased [Unknown]
  - Haematemesis [Unknown]
  - Hepatic mass [Unknown]
  - Pleural effusion [Unknown]
  - Disease progression [Unknown]
  - Eyelid pain [Unknown]
  - Nephrolithiasis [Unknown]
  - Aortic calcification [Unknown]
  - Lung disorder [Unknown]
  - Dyspnoea exertional [Unknown]
  - Nausea [Unknown]
  - Blood creatinine increased [Unknown]
  - Aortic valve stenosis [Unknown]
  - Fatigue [Unknown]
  - Tricuspid valve incompetence [Unknown]
  - Pericardial effusion [Unknown]
  - Aortic arteriosclerosis [Unknown]
  - Pulmonary mass [Unknown]
  - Decreased appetite [Unknown]
  - Aortic valve incompetence [Unknown]
  - Weight increased [Unknown]
  - Peripheral swelling [Unknown]
  - Blood calcium increased [Unknown]

NARRATIVE: CASE EVENT DATE: 2013
